FAERS Safety Report 20430182 (Version 1)
Quarter: 2022Q1

REPORT INFORMATION
  Report Type: Spontaneous
  Country: US (occurrence: None)
  Receive Date: 20220203
  Receipt Date: 20220203
  Transmission Date: 20220423
  Serious: No
  Sender: FDA-Public Use
  Company Number: None

PATIENT
  Age: 51 Year

DRUGS (2)
  1. HEPARIN LOCK FLUSH [Suspect]
     Active Substance: HEPARIN SODIUM
  2. UDENYCA [Concomitant]
     Active Substance: PEGFILGRASTIM-CBQV

REACTIONS (3)
  - Erythema [None]
  - Flushing [None]
  - Blood pressure increased [None]

NARRATIVE: CASE EVENT DATE: 20220120
